FAERS Safety Report 4474087-4 (Version None)
Quarter: 2004Q4

REPORT INFORMATION
  Report Type: 
  Country: None (occurrence: None)
  Receive Date: 20041008
  Receipt Date: 20040915
  Transmission Date: 20050328
  Serious: No
  Sender: FDA-Public Use
  Company Number: 04-ADE-SU-0005-NAS

PATIENT
  Sex: Female

DRUGS (2)
  1. NASCOBAL [Suspect]
     Indication: GASTRIC BYPASS
     Dosage: 500 UG, 1 /WK, IN;END OF MAY/BEGINNING OF JUNE
     Route: 045
  2. NASCOBAL [Suspect]
     Indication: POSTOPERATIVE CARE
     Dosage: 500 UG, 1 /WK, IN;END OF MAY/BEGINNING OF JUNE
     Route: 045

REACTIONS (6)
  - EPISTAXIS [None]
  - ERYTHEMA [None]
  - METASTATIC NEOPLASM [None]
  - NASAL DRYNESS [None]
  - NASAL OEDEMA [None]
  - ULCER [None]
